FAERS Safety Report 9611252 (Version 1)
Quarter: 2013Q4

REPORT INFORMATION
  Report Type: Spontaneous
  Country: FR (occurrence: FR)
  Receive Date: 20131010
  Receipt Date: 20131010
  Transmission Date: 20140711
  Serious: Yes (Hospitalization)
  Sender: FDA-Public Use
  Company Number: PHHY2013FR111333

PATIENT
  Age: 40 Year
  Sex: Male

DRUGS (10)
  1. TEGRETOL LP [Suspect]
     Indication: EPILEPSY
     Dosage: 400 MG, QD
     Route: 048
  2. ATORVASTATIN [Suspect]
     Dosage: 10 MG, QD
     Route: 048
  3. TROBALT [Suspect]
     Indication: EPILEPSY
     Dosage: 300 MG, QD
     Route: 048
  4. TROBALT [Suspect]
     Dosage: 150 MG, QD
     Route: 048
     Dates: start: 20130718
  5. TROBALT [Suspect]
     Dosage: 50 MG, TID
  6. DEPAKINE CHRONO [Suspect]
     Indication: EPILEPSY
     Dosage: 2000 MG, QD
     Route: 048
  7. ZEBINIX [Suspect]
     Indication: EPILEPSY
     Dosage: 400 MG, QD
     Route: 048
  8. ZONEGRAN [Suspect]
     Indication: EPILEPSY
     Dosage: 600 MG, QD
     Route: 048
  9. URBANYL [Suspect]
     Indication: EPILEPSY
     Dosage: 40 MG, QD
     Route: 048
  10. LEVOTHYROX [Concomitant]
     Dosage: 50 UG, QD

REACTIONS (1)
  - Diplopia [Recovered/Resolved]
